FAERS Safety Report 13434619 (Version 4)
Quarter: 2017Q3

REPORT INFORMATION
  Report Type: Spontaneous
  Country: US (occurrence: US)
  Receive Date: 20170413
  Receipt Date: 20170814
  Transmission Date: 20171127
  Serious: Yes (Other)
  Sender: FDA-Public Use
  Company Number: US-PFIZER INC-2017154760

PATIENT
  Age: 73 Year
  Sex: Female
  Weight: 50.34 kg

DRUGS (4)
  1. IBRANCE [Suspect]
     Active Substance: PALBOCICLIB
     Dosage: 100 MG, CYCLIC, (D 1-21 Q 28 DAYS)
     Route: 048
     Dates: start: 20170317
  2. IBRANCE [Suspect]
     Active Substance: PALBOCICLIB
     Indication: BREAST CANCER METASTATIC
     Dosage: 125 MG, CYCLIC (ONCE A DAY FROM DAY 1 TO DAY 21 EVERY 28 DAYS)
     Route: 048
     Dates: start: 20170317, end: 2017
  3. IBRANCE [Suspect]
     Active Substance: PALBOCICLIB
     Dosage: 75 MG, CYCLIC(DAYS 1-21 Q28 DAYS)
     Route: 048
     Dates: start: 20170317, end: 201708
  4. IBRANCE [Suspect]
     Active Substance: PALBOCICLIB
     Dosage: 125 MG, CYCLIC, (DAY 1-21 Q 28 DAYS)
     Route: 048
     Dates: start: 20170313

REACTIONS (5)
  - Wound infection [Unknown]
  - Full blood count decreased [Unknown]
  - Radiation injury [Unknown]
  - Condition aggravated [Unknown]
  - White blood cell count decreased [Unknown]

NARRATIVE: CASE EVENT DATE: 2017
